FAERS Safety Report 23637043 (Version 4)
Quarter: 2024Q2

REPORT INFORMATION
  Report Type: Report from Study
  Country: US (occurrence: US)
  Receive Date: 20240315
  Receipt Date: 20240520
  Transmission Date: 20240716
  Serious: Yes (Other)
  Sender: FDA-Public Use
  Company Number: US-OTSUKA-2024_006428

PATIENT
  Sex: Female

DRUGS (2)
  1. TOLVAPTAN [Suspect]
     Active Substance: TOLVAPTAN
     Indication: Congenital cystic kidney disease
     Dosage: 45 MG
     Route: 065
     Dates: start: 20240229
  2. TOLVAPTAN [Suspect]
     Active Substance: TOLVAPTAN
     Dosage: 15 MG
     Route: 065
     Dates: start: 20240229

REACTIONS (9)
  - Choking [Unknown]
  - Hernia repair [Unknown]
  - Incision site complication [Unknown]
  - Ill-defined disorder [Unknown]
  - Cough [Unknown]
  - Glomerular filtration rate decreased [Not Recovered/Not Resolved]
  - Dry mouth [Unknown]
  - Thirst [Unknown]
  - Product use issue [Unknown]

NARRATIVE: CASE EVENT DATE: 20240308
